FAERS Safety Report 21309033 (Version 1)
Quarter: 2022Q3

REPORT INFORMATION
  Report Type: Report from Study
  Country: CA (occurrence: CA)
  Receive Date: 20220908
  Receipt Date: 20220908
  Transmission Date: 20221027
  Serious: Yes (Other)
  Sender: FDA-Public Use
  Company Number: CA-GILEAD-2022-0573726

PATIENT
  Sex: Female

DRUGS (8)
  1. SACITUZUMAB GOVITECAN [Suspect]
     Active Substance: SACITUZUMAB GOVITECAN
     Indication: Triple negative breast cancer
     Dosage: 710 MG, CYCLE 1 D1,8
     Route: 042
     Dates: start: 20220117, end: 20220124
  2. SACITUZUMAB GOVITECAN [Suspect]
     Active Substance: SACITUZUMAB GOVITECAN
     Dosage: 650 MG
     Route: 042
     Dates: start: 20220117
  3. SACITUZUMAB GOVITECAN [Suspect]
     Active Substance: SACITUZUMAB GOVITECAN
     Dosage: CYCLE 2 D1,8
     Route: 042
     Dates: start: 20220208, end: 20220215
  4. SACITUZUMAB GOVITECAN [Suspect]
     Active Substance: SACITUZUMAB GOVITECAN
     Dosage: CYCLE 3 D1,8
     Route: 042
     Dates: start: 20220308, end: 20220321
  5. SACITUZUMAB GOVITECAN [Suspect]
     Active Substance: SACITUZUMAB GOVITECAN
     Dosage: CYCLE 4 D1,8
     Route: 042
     Dates: start: 20220405, end: 20220412
  6. SACITUZUMAB GOVITECAN [Suspect]
     Active Substance: SACITUZUMAB GOVITECAN
     Dosage: CYCLE 5 D1,8
     Route: 042
     Dates: start: 20220425, end: 20220502
  7. SACITUZUMAB GOVITECAN [Suspect]
     Active Substance: SACITUZUMAB GOVITECAN
     Dosage: CYCLE 6 D1,8
     Route: 042
     Dates: start: 20220516, end: 20220524
  8. SACITUZUMAB GOVITECAN [Suspect]
     Active Substance: SACITUZUMAB GOVITECAN
     Dosage: 710 MG
     Route: 042
     Dates: end: 20220815

REACTIONS (5)
  - Disease progression [Unknown]
  - Rubber sensitivity [Not Recovered/Not Resolved]
  - Rash [Unknown]
  - Diarrhoea [Unknown]
  - Inappropriate schedule of product administration [Unknown]
